FAERS Safety Report 8492388-X (Version None)
Quarter: 2012Q3

REPORT INFORMATION
  Report Type: 
  Country: None (occurrence: None)
  Receive Date: 20120706
  Receipt Date: 20120704
  Transmission Date: 20120928
  Serious: Yes (Life-Threatening, Hospitalization)
  Sender: FDA-Public Use
  Company Number: AU-B.I. PHARMACEUTICALS,INC./RIDGEFIELD-2012-AU-01155AU

PATIENT
  Sex: Male
  Weight: 105 kg

DRUGS (12)
  1. PRADAXA [Suspect]
     Indication: CEREBROVASCULAR ACCIDENT PROPHYLAXIS
  2. ENOXAPARIN SODIUM [Suspect]
     Dates: start: 20120606, end: 20120608
  3. ALDACTONE [Concomitant]
  4. METFORMIN HCL [Concomitant]
  5. LANOXIN [Concomitant]
  6. LASIX [Concomitant]
  7. EZETIMIBE [Concomitant]
  8. CARVEDILOL [Concomitant]
  9. RAMIPRIL [Concomitant]
  10. PRADAXA [Suspect]
     Indication: ATRIAL FIBRILLATION
     Dosage: 300 MG
     Dates: start: 20110627, end: 20120602
  11. GLICLAZIDE [Concomitant]
  12. LIPITOR [Concomitant]

REACTIONS (3)
  - CEREBROVASCULAR ACCIDENT [None]
  - BRAIN OEDEMA [None]
  - CEREBRAL HAEMORRHAGE [None]
